FAERS Safety Report 4909017-1 (Version None)
Quarter: 2006Q1

REPORT INFORMATION
  Report Type: 
  Country: None (occurrence: None)
  Receive Date: 20060213
  Receipt Date: 20060130
  Transmission Date: 20060701
  Serious: Yes (Disabling, Other)
  Sender: FDA-Public Use
  Company Number: JP-BOEHRINGER INGELHEIM PHARMACEUTICALS, INC.-2006-BP-01569YA

PATIENT
  Sex: Male

DRUGS (6)
  1. HARNAL [Suspect]
     Indication: BENIGN PROSTATIC HYPERPLASIA
     Route: 048
     Dates: start: 20030423
  2. ACETYLSALICYLIC ACID SRT [Concomitant]
     Dates: start: 20020101
  3. GLICLAZIDE [Concomitant]
     Dates: start: 20020101
  4. VOGLIBOSE [Concomitant]
     Dates: start: 20020101
  5. TOCOPHERYL NICOTINATE [Concomitant]
     Dates: start: 20020101
  6. THEOPHYLLINE [Concomitant]
     Dates: start: 20020101

REACTIONS (2)
  - CATARACT NUCLEAR [None]
  - IRIS DISORDER [None]
